FAERS Safety Report 8902308 (Version 2)
Quarter: 2012Q4

REPORT INFORMATION
  Report Type: 
  Country: JP (occurrence: JP)
  Receive Date: 20121113
  Receipt Date: 20121212
  Transmission Date: 20130627
  Serious: Yes (Other)
  Sender: FDA-Public Use
  Company Number: PHHY2012JP097683

PATIENT
  Age: 81 Year
  Sex: Male
  Weight: 58 kg

DRUGS (8)
  1. ZOMETA [Suspect]
     Indication: MULTIPLE MYELOMA
     Dosage: 4 mg, (per administration)
     Route: 041
     Dates: end: 201011
  2. GLUFAST [Concomitant]
     Route: 048
  3. PREDONINE [Concomitant]
     Route: 048
  4. BAYASPIRIN [Concomitant]
     Route: 048
  5. GASTER [Concomitant]
  6. ZYLORIC [Concomitant]
  7. PRAVASTATIN SODIUM [Concomitant]
  8. ALKERAN [Concomitant]

REACTIONS (2)
  - Osteonecrosis of jaw [Not Recovered/Not Resolved]
  - Gingival pain [Not Recovered/Not Resolved]
